FAERS Safety Report 9885746 (Version 1)
Quarter: 2014Q1

REPORT INFORMATION
  Report Type: Spontaneous
  Country: US (occurrence: US)
  Receive Date: 20140210
  Receipt Date: 20140210
  Transmission Date: 20141002
  Serious: Yes (Hospitalization, Other)
  Sender: FDA-Public Use
  Company Number: US-PFIZER INC-2014033537

PATIENT
  Sex: Female

DRUGS (1)
  1. XANAX [Suspect]
     Indication: GENERALISED ANXIETY DISORDER
     Dosage: UNK

REACTIONS (4)
  - Hypersensitivity [Unknown]
  - Anaphylactic shock [Unknown]
  - Drug tolerance [Unknown]
  - Drug administration error [Unknown]
